FAERS Safety Report 8440251-2 (Version None)
Quarter: 2012Q2

REPORT INFORMATION
  Report Type: 
  Country: None (occurrence: None)
  Receive Date: 20120615
  Receipt Date: 20120607
  Transmission Date: 20120825
  Serious: Yes (Other)
  Sender: FDA-Public Use
  Company Number: JP-ROCHE-1077462

PATIENT
  Sex: Male
  Weight: 55.07 kg

DRUGS (10)
  1. OMALIZUMAB [Suspect]
     Indication: ASTHMA
     Route: 058
     Dates: start: 20111025, end: 20120301
  2. WARFARIN POTASSIUM [Concomitant]
  3. OMALIZUMAB [Suspect]
     Dates: start: 20120118
  4. ADVAIR DISKUS 100/50 [Concomitant]
     Dates: start: 20111019
  5. PREDNISOLONE [Concomitant]
     Dates: start: 20110419
  6. FAMOTIDINE [Concomitant]
     Dates: start: 20110311
  7. MUCODYNE [Concomitant]
  8. OMALIZUMAB [Suspect]
     Dates: start: 20110104
  9. OMALIZUMAB [Suspect]
     Dates: start: 20120216, end: 20120331
  10. ALLEGRA [Concomitant]

REACTIONS (3)
  - INFECTIOUS PLEURAL EFFUSION [None]
  - NASOPHARYNGITIS [None]
  - SPINAL COMPRESSION FRACTURE [None]
